FAERS Safety Report 13705484 (Version 3)
Quarter: 2017Q3

REPORT INFORMATION
  Report Type: Report from Study
  Country: US (occurrence: US)
  Receive Date: 20170630
  Receipt Date: 20170811
  Transmission Date: 20171127
  Serious: Yes (Hospitalization)
  Sender: FDA-Public Use
  Company Number: US-AMGEN-USASL2017096877

PATIENT
  Age: 49 Year
  Sex: Male

DRUGS (1)
  1. REPATHA [Suspect]
     Active Substance: EVOLOCUMAB
     Indication: HYPERCHOLESTEROLAEMIA
     Dosage: 140 MG, Q2WK
     Route: 065
     Dates: start: 2016

REACTIONS (5)
  - Renal pain [Unknown]
  - Pharyngitis [Recovered/Resolved]
  - Lymphadenopathy [Recovering/Resolving]
  - Oropharyngeal discomfort [Unknown]
  - Headache [Unknown]

NARRATIVE: CASE EVENT DATE: 2017
